FAERS Safety Report 5032737-8 (Version None)
Quarter: 2006Q2

REPORT INFORMATION
  Report Type: 
  Country: None (occurrence: None)
  Receive Date: 20060620
  Receipt Date: 20060620
  Transmission Date: 20061013
  Serious: Yes (Life-Threatening)
  Sender: FDA-Public Use
  Company Number: None

PATIENT
  Sex: Male
  Weight: 90.2658 kg

DRUGS (4)
  1. PEGASYS [Suspect]
     Indication: HEPATITIS C VIRUS
     Dosage: 180 MCG Q WK SQ
     Route: 058
     Dates: start: 20050622, end: 20060504
  2. COPEGUS [Suspect]
     Indication: HEPATITIS C VIRUS
     Dosage: 400 MG BID PO
     Route: 048
     Dates: start: 20050602, end: 20060504
  3. PROCRIT [Concomitant]
  4. TRAZODONE HCL [Concomitant]

REACTIONS (1)
  - ANAEMIA [None]
